FAERS Safety Report 24771718 (Version 1)
Quarter: 2024Q4

REPORT INFORMATION
  Report Type: Spontaneous
  Country: US (occurrence: None)
  Receive Date: 20241224
  Receipt Date: 20241224
  Transmission Date: 20250115
  Serious: No
  Sender: Public
  Company Number: None

PATIENT
  Age: 51 Year
  Sex: Female
  Weight: 104.33 kg

DRUGS (1)
  1. SKYRIZI [Suspect]
     Active Substance: RISANKIZUMAB-RZAA
     Indication: Psoriasis
     Dosage: OTHER FREQUENCY : AT WEEK 0 AND WEEK 4;?
     Route: 058
     Dates: start: 202001

REACTIONS (5)
  - Headache [None]
  - Fungal skin infection [None]
  - Fungal infection [None]
  - Tooth infection [None]
  - Gingivitis [None]
